FAERS Safety Report 15355371 (Version 1)
Quarter: 2018Q3

REPORT INFORMATION
  Report Type: Other
  Country: GB (occurrence: GB)
  Receive Date: 20180906
  Receipt Date: 20180906
  Transmission Date: 20181010
  Serious: Yes (Other)
  Sender: FDA-Public Use
  Company Number: GB-LUPIN PHARMACEUTICALS INC.-2018-06182

PATIENT
  Age: 65 Year
  Sex: Male
  Weight: 82.9 kg

DRUGS (2)
  1. LISINOPRIL TABLETS [Suspect]
     Active Substance: LISINOPRIL
     Indication: HYPERTENSION
     Dosage: 5 MG, UNK
     Route: 048
     Dates: end: 20170509
  2. LISINOPRIL TABLETS [Suspect]
     Active Substance: LISINOPRIL
     Dosage: 10 MG, UNK
     Route: 048
     Dates: start: 20170510, end: 20180614

REACTIONS (4)
  - Pruritus [Recovered/Resolved with Sequelae]
  - Cough [Recovered/Resolved]
  - Pain [Recovered/Resolved with Sequelae]
  - Fungal infection [Recovered/Resolved with Sequelae]

NARRATIVE: CASE EVENT DATE: 20170512
